FAERS Safety Report 21714465 (Version 1)
Quarter: 2022Q4

REPORT INFORMATION
  Report Type: Spontaneous
  Country: US (occurrence: None)
  Receive Date: 20221210
  Receipt Date: 20221210
  Transmission Date: 20230113
  Serious: Yes (Life-Threatening, Other)
  Sender: FDA-Public Use
  Company Number: None

PATIENT
  Age: 47 Year
  Sex: Female
  Weight: 119.25 kg

DRUGS (8)
  1. DEXTROAMPHET SACCHARAT, AMPHET ASPARTATE, DEXTROAMPHET SULFATE AND AMP [Suspect]
     Active Substance: AMPHETAMINE ASPARTATE\AMPHETAMINE SULFATE\DEXTROAMPHETAMINE SACCHARATE\DEXTROAMPHETAMINE SULFATE
     Indication: Attention deficit hyperactivity disorder
     Dosage: FREQUENCY : TWICE A DAY;?
     Route: 048
     Dates: start: 20221209, end: 20221209
  2. EFFEXOR [Concomitant]
     Active Substance: VENLAFAXINE HYDROCHLORIDE
  3. PRAZOSIN [Concomitant]
     Active Substance: PRAZOSIN
  4. UBRELVY [Concomitant]
     Active Substance: UBROGEPANT
  5. IBUPROFEN [Concomitant]
     Active Substance: IBUPROFEN
  6. NAPROXEN [Concomitant]
     Active Substance: NAPROXEN
  7. generic Excedrin, [Concomitant]
  8. daily multi [Concomitant]

REACTIONS (22)
  - Product availability issue [None]
  - Product supply issue [None]
  - Illness [None]
  - Disturbance in attention [None]
  - Mental impairment [None]
  - Suicidal ideation [None]
  - Therapeutic response changed [None]
  - Product substitution issue [None]
  - Electric shock sensation [None]
  - Nausea [None]
  - Diarrhoea [None]
  - Migraine [None]
  - Paraesthesia [None]
  - Pain of skin [None]
  - Flushing [None]
  - Pain [None]
  - Mood altered [None]
  - Crying [None]
  - Incoherent [None]
  - Fear [None]
  - Feeling of despair [None]
  - Adverse drug reaction [None]

NARRATIVE: CASE EVENT DATE: 20221209
